FAERS Safety Report 10208507 (Version 2)
Quarter: 2014Q2

REPORT INFORMATION
  Report Type: Spontaneous
  Country: FR (occurrence: FR)
  Receive Date: 20140530
  Receipt Date: 20140611
  Transmission Date: 20141212
  Serious: Yes (Other)
  Sender: FDA-Public Use
  Company Number: FR-GLAXOSMITHKLINE-B0996759A

PATIENT
  Age: 40 Year
  Sex: Male

DRUGS (7)
  1. AVAMYS [Suspect]
     Indication: RHINITIS ALLERGIC
     Dosage: 1SPR PER DAY
     Route: 045
  2. OMEPRAZOLE [Suspect]
     Indication: GASTROOESOPHAGEAL REFLUX DISEASE
     Dosage: 20MG PER DAY
     Route: 048
  3. SOLUMEDROL [Suspect]
     Indication: PRODUCT USED FOR UNKNOWN INDICATION
     Dosage: 1UNIT PER DAY
     Route: 042
     Dates: start: 20140509, end: 20140515
  4. KESTIN [Concomitant]
     Route: 065
  5. NYSTATINE [Concomitant]
     Route: 065
  6. NOZINAN [Concomitant]
     Route: 065
  7. LACTULOSE [Concomitant]
     Route: 065

REACTIONS (4)
  - Pancreatitis acute [Not Recovered/Not Resolved]
  - Colitis [Unknown]
  - Pyrexia [Unknown]
  - Rectal haemorrhage [Unknown]
